FAERS Safety Report 4428609-X (Version None)
Quarter: 2004Q3

REPORT INFORMATION
  Report Type: 
  Country: None (occurrence: None)
  Receive Date: 20040816
  Receipt Date: 20040730
  Transmission Date: 20050211
  Serious: Yes (Hospitalization, Disabling)
  Sender: FDA-Public Use
  Company Number: DSA_23210_2003

PATIENT
  Age: 52 Year
  Sex: Male
  Weight: 81.6475 kg

DRUGS (8)
  1. VASOTEC [Suspect]
     Indication: HYPERTENSION
     Dosage: 5 MG QHS PO
     Route: 048
     Dates: start: 20021116, end: 20030224
  2. ZESTRIL [Suspect]
     Indication: CARDIAC DISORDER
     Dosage: 5 MG
     Dates: start: 20030126, end: 20030210
  3. ZESTRIL [Suspect]
     Indication: PROPHYLAXIS
     Dosage: 5 MG
     Dates: start: 20030126, end: 20030210
  4. ESKALITH [Concomitant]
  5. ZESTRIL [Suspect]
     Indication: CARDIAC DISORDER
     Dosage: 10 MG
     Dates: start: 20030210, end: 20030226
  6. ZESTRIL [Suspect]
     Indication: PROPHYLAXIS
     Dosage: 10 MG
     Dates: start: 20030210, end: 20030226
  7. ESKALITH [Concomitant]
  8. VERAPAMIL [Concomitant]

REACTIONS (19)
  - ASTHENIA [None]
  - ATAXIA [None]
  - CHEST PAIN [None]
  - CHOREA [None]
  - CORONARY ARTERY OCCLUSION [None]
  - DRUG INTERACTION [None]
  - DRUG TOXICITY [None]
  - DYSPNOEA [None]
  - FEELING ABNORMAL [None]
  - GAIT DISTURBANCE [None]
  - HEADACHE [None]
  - HYPERHIDROSIS [None]
  - INFLUENZA LIKE ILLNESS [None]
  - MEDICATION ERROR [None]
  - MEMORY IMPAIRMENT [None]
  - NAUSEA [None]
  - NERVOUS SYSTEM DISORDER [None]
  - THERAPEUTIC AGENT TOXICITY [None]
  - TREMOR [None]
